FAERS Safety Report 11452451 (Version 1)
Quarter: 2015Q3

REPORT INFORMATION
  Report Type: Spontaneous
  Country: US (occurrence: US)
  Receive Date: 20150831
  Receipt Date: 20150831
  Transmission Date: 20151125
  Serious: No
  Sender: FDA-Public Use
  Company Number: US-ELI_LILLY_AND_COMPANY-US200909007116

PATIENT
  Age: 47 Year
  Sex: Female

DRUGS (2)
  1. CYMBALTA [Suspect]
     Active Substance: DULOXETINE HYDROCHLORIDE
     Indication: MENOPAUSAL DEPRESSION
     Dosage: 20 MG, DAILY (1/D)
     Route: 048
     Dates: start: 200804
  2. CYMBALTA [Suspect]
     Active Substance: DULOXETINE HYDROCHLORIDE
     Dosage: 10 MG, DAILY (1/D)
     Route: 048

REACTIONS (5)
  - Depressed mood [Unknown]
  - Sleep disorder [Recovered/Resolved]
  - Drug prescribing error [Not Recovered/Not Resolved]
  - Hot flush [Unknown]
  - Menstrual disorder [Unknown]

NARRATIVE: CASE EVENT DATE: 200808
